FAERS Safety Report 21690353 (Version 1)
Quarter: 2022Q4

REPORT INFORMATION
  Report Type: Spontaneous
  Country: US (occurrence: None)
  Receive Date: 20221206
  Receipt Date: 20221206
  Transmission Date: 20230113
  Serious: Yes (Hospitalization)
  Sender: FDA-Public Use
  Company Number: None

PATIENT
  Sex: Female
  Weight: 80.2 kg

DRUGS (3)
  1. METHOTREXATE [Suspect]
     Active Substance: METHOTREXATE
     Dates: end: 20220927
  2. PEG/L-ASPARAGINASE [Suspect]
     Active Substance: PEGASPARGASE
     Dates: end: 20220922
  3. RITUXIMAB [Suspect]
     Active Substance: RITUXIMAB
     Dates: end: 20220905

REACTIONS (14)
  - Lactic acidosis [None]
  - Pleural effusion [None]
  - Gastrointestinal wall thickening [None]
  - Hypoalbuminaemia [None]
  - Diarrhoea [None]
  - Hypercalcaemia [None]
  - Liver function test increased [None]
  - Hyperbilirubinaemia [None]
  - Ascites [None]
  - Leukocytosis [None]
  - Hypotension [None]
  - Hypothermia [None]
  - Septic shock [None]
  - Respiratory failure [None]

NARRATIVE: CASE EVENT DATE: 20221004
